FAERS Safety Report 10919180 (Version 1)
Quarter: 2015Q1

REPORT INFORMATION
  Report Type: Spontaneous
  Country: TW (occurrence: TW)
  Receive Date: 20150316
  Receipt Date: 20150316
  Transmission Date: 20150721
  Serious: Yes (Other)
  Sender: FDA-Public Use
  Company Number: TW-MYLANLABS-2015M1008259

PATIENT

DRUGS (3)
  1. CEFAZOLIN [Suspect]
     Active Substance: CEFAZOLIN
     Indication: THERAPEUTIC EMBOLISATION
     Route: 065
     Dates: start: 20120622
  2. ETHIODIZED OIL [Suspect]
     Active Substance: ETHIODIZED OIL
     Indication: THERAPEUTIC EMBOLISATION
     Dosage: 20ML
     Route: 065
     Dates: start: 20120622
  3. DOXORUBICIN [Suspect]
     Active Substance: DOXORUBICIN
     Indication: THERAPEUTIC EMBOLISATION
     Dosage: 40MG
     Route: 065
     Dates: start: 20120622

REACTIONS (2)
  - Tumour lysis syndrome [Recovering/Resolving]
  - Acute kidney injury [Recovered/Resolved]
